FAERS Safety Report 19455467 (Version 17)
Quarter: 2023Q4

REPORT INFORMATION
  Report Type: Report from Study
  Country: CH (occurrence: CH)
  Receive Date: 20210623
  Receipt Date: 20231129
  Transmission Date: 20240110
  Serious: Yes (Hospitalization)
  Sender: FDA-Public Use
  Company Number: CH-ABBVIE-20K-151-3628782-00

PATIENT
  Age: 83 Year
  Sex: Male
  Weight: 68 kg

DRUGS (20)
  1. VENETOCLAX [Suspect]
     Active Substance: VENETOCLAX
     Indication: Chronic lymphocytic leukaemia
     Route: 048
     Dates: start: 20200924, end: 20200930
  2. VENETOCLAX [Suspect]
     Active Substance: VENETOCLAX
     Indication: Chronic lymphocytic leukaemia
     Route: 048
     Dates: start: 20220401, end: 20230829
  3. VENETOCLAX [Suspect]
     Active Substance: VENETOCLAX
     Indication: Chronic lymphocytic leukaemia
     Route: 048
     Dates: start: 20200916, end: 20200916
  4. VENETOCLAX [Suspect]
     Active Substance: VENETOCLAX
     Indication: Chronic lymphocytic leukaemia
     Route: 048
     Dates: start: 20200818, end: 20200908
  5. VENETOCLAX [Suspect]
     Active Substance: VENETOCLAX
     Indication: Chronic lymphocytic leukaemia
     Route: 048
     Dates: start: 20200917, end: 20200923
  6. VENETOCLAX [Suspect]
     Active Substance: VENETOCLAX
     Indication: Chronic lymphocytic leukaemia
     Route: 048
     Dates: start: 20201008, end: 20220316
  7. VENETOCLAX [Suspect]
     Active Substance: VENETOCLAX
     Indication: Chronic lymphocytic leukaemia
     Route: 048
     Dates: start: 20201001, end: 20201007
  8. VENETOCLAX [Suspect]
     Active Substance: VENETOCLAX
     Indication: Chronic lymphocytic leukaemia
     Route: 048
     Dates: start: 20200909, end: 20200915
  9. VENETOCLAX [Suspect]
     Active Substance: VENETOCLAX
     Indication: Chronic lymphocytic leukaemia
     Route: 048
     Dates: start: 20220317, end: 20220331
  10. VENETOCLAX [Suspect]
     Active Substance: VENETOCLAX
     Indication: Chronic lymphocytic leukaemia
     Route: 048
  11. LISINOPRILUM [Concomitant]
     Indication: Coronary artery disease
     Dosage: 5 MILLIGRAM
     Route: 048
     Dates: start: 20110620
  12. VI DE 3 [Concomitant]
     Indication: Supplementation therapy
     Dosage: 1000 IU (INTERNATIONAL UNIT)
     Route: 048
     Dates: start: 20200901
  13. ASPIRIN [Concomitant]
     Active Substance: ASPIRIN
     Indication: Coronary artery disease
     Dosage: 100 MILLIGRAM
     Route: 048
     Dates: start: 20110620
  14. ISOSORBIDEDINITRAAT [Concomitant]
     Indication: Coronary artery disease
     Dosage: 20 MILLIGRAM
     Route: 048
     Dates: start: 20120313
  15. TORSEMIDE [Concomitant]
     Active Substance: TORSEMIDE
     Indication: Coronary artery disease
     Route: 048
  16. INDACATEROL [Concomitant]
     Active Substance: INDACATEROL
     Indication: Chronic obstructive pulmonary disease
     Dosage: 110/50 MICROG
     Route: 055
  17. TAMSULOSIN [Concomitant]
     Active Substance: TAMSULOSIN
     Indication: Benign prostatic hyperplasia
     Dosage: 0.4 MILLIGRAM
     Route: 048
  18. NEBIVOLOL [Concomitant]
     Active Substance: NEBIVOLOL
     Indication: Coronary artery disease
     Route: 048
     Dates: start: 20110620
  19. PFIZER-BIONTECH COVID-19 VACCINE [Concomitant]
     Active Substance: TOZINAMERAN
     Indication: COVID-19 immunisation
     Dosage: FIRST DOSE?FREQUENCY: ONE IN ONCE
     Route: 030
     Dates: start: 20210415, end: 20210415
  20. PFIZER-BIONTECH COVID-19 VACCINE [Concomitant]
     Active Substance: TOZINAMERAN
     Indication: COVID-19 immunisation
     Dosage: FIRST DOSE?FREQUENCY: ONE IN ONCE
     Route: 030
     Dates: start: 20210510, end: 20210510

REACTIONS (8)
  - Infection [Recovered/Resolved]
  - COVID-19 [Recovered/Resolved]
  - Blood creatinine increased [Recovered/Resolved]
  - Pyrexia [Recovered/Resolved]
  - Vomiting [Recovered/Resolved]
  - Abdominal pain [Recovered/Resolved]
  - Pyrexia [Recovered/Resolved]
  - Abdominal pain [Recovered/Resolved]

NARRATIVE: CASE EVENT DATE: 20200916
